FAERS Safety Report 5448905-7 (Version None)
Quarter: 2007Q3

REPORT INFORMATION
  Report Type: 
  Country: None (occurrence: None)
  Receive Date: 20070911
  Receipt Date: 20070905
  Transmission Date: 20080115
  Serious: Yes (Other)
  Sender: FDA-Public Use
  Company Number: AU-AVENTIS-200718167GDDC

PATIENT
  Age: 67 Year
  Sex: Female

DRUGS (3)
  1. ARAVA [Suspect]
     Indication: RHEUMATOID ARTHRITIS
     Route: 048
     Dates: start: 20070601
  2. ARAVA [Suspect]
     Dosage: DOSE: UNK
     Dates: start: 19990101, end: 20070601
  3. COVERSYL                           /00790701/ [Concomitant]
     Dosage: DOSE: UNK

REACTIONS (2)
  - HYPERTENSION [None]
  - RENAL IMPAIRMENT [None]
